FAERS Safety Report 10065439 (Version 3)
Quarter: 2020Q3

REPORT INFORMATION
  Report Type: Spontaneous
  Country: FR (occurrence: FR)
  Receive Date: 20140408
  Receipt Date: 20140521
  Transmission Date: 20201104
  Serious: Yes (Life-Threatening)
  Sender: FDA-Public Use
  Company Number: FR-PFIZER INC-2014093527

PATIENT
  Age: 27 Year
  Sex: Male

DRUGS (12)
  1. LAMPRENE [Suspect]
     Active Substance: CLOFAZIMINE
     Dosage: 50 MG, DAILY
     Route: 048
     Dates: start: 20140218
  2. AMIKACIN. [Suspect]
     Active Substance: AMIKACIN
     Dosage: 500 MG, DAILY
     Route: 042
  3. ZYVOXID [Suspect]
     Active Substance: LINEZOLID
     Dosage: 600 MG, DAILY
     Route: 048
     Dates: start: 20140128
  4. BEDAQUILINE [Suspect]
     Active Substance: BEDAQUILINE
     Dosage: 200 MG, DAILY
     Route: 048
  5. BEDAQUILINE [Suspect]
     Active Substance: BEDAQUILINE
     Dosage: 200 MG THREE TIMES PER WEEK
  6. TAVANIC [Suspect]
     Active Substance: LEVOFLOXACIN
     Dosage: 1 G, DAILY
     Route: 048
     Dates: start: 20140207
  7. IZILOX [Suspect]
     Active Substance: MOXIFLOXACIN HYDROCHLORIDE
     Dosage: UNK
     Route: 048
     Dates: start: 20140129, end: 20140207
  8. LAMPRENE [Suspect]
     Active Substance: CLOFAZIMINE
     Dosage: 100 MG, DAILY
     Route: 048
     Dates: start: 20140128
  9. CYCLOSERINE. [Suspect]
     Active Substance: CYCLOSERINE
     Dosage: 250 MG, DAILY
     Route: 048
     Dates: start: 20140128
  10. AMIKACIN. [Suspect]
     Active Substance: AMIKACIN
     Dosage: 900 MG, DAILY
     Route: 042
     Dates: start: 20140128
  11. AMIKACIN. [Suspect]
     Active Substance: AMIKACIN
     Dosage: 600 MG, DAILY
     Route: 042
  12. BEDAQUILINE [Suspect]
     Active Substance: BEDAQUILINE
     Dosage: 400 MG, DAILY FOR 15 DAYS
     Route: 048
     Dates: start: 20140128

REACTIONS (1)
  - Electrocardiogram QT prolonged [Recovered/Resolved]

NARRATIVE: CASE EVENT DATE: 20140213
